FAERS Safety Report 16299084 (Version 1)
Quarter: 2019Q2

REPORT INFORMATION
  Report Type: Spontaneous
  Country: US (occurrence: US)
  Receive Date: 20190510
  Receipt Date: 20190510
  Transmission Date: 20190711
  Serious: No
  Sender: FDA-Public Use
  Company Number: PHEH2019US019481

PATIENT
  Sex: Male

DRUGS (1)
  1. BIMATOPROST. [Suspect]
     Active Substance: BIMATOPROST
     Indication: MADAROSIS
     Dosage: UNK
     Route: 065

REACTIONS (6)
  - Ocular hyperaemia [Unknown]
  - Excessive eye blinking [Unknown]
  - Accidental exposure to product [Unknown]
  - Asthenopia [Unknown]
  - Incorrect dose administered [Unknown]
  - Eye irritation [Unknown]
